FAERS Safety Report 9723479 (Version 3)
Quarter: 2014Q1

REPORT INFORMATION
  Report Type: Spontaneous
  Country: US (occurrence: US)
  Receive Date: 20131202
  Receipt Date: 20140311
  Transmission Date: 20141002
  Serious: Yes (Other)
  Sender: FDA-Public Use
  Company Number: US-PFIZER INC-2013340788

PATIENT
  Age: 7 Year
  Sex: Female
  Weight: 25.9 kg

DRUGS (5)
  1. GENOTROPIN MQ [Suspect]
     Indication: HYPOPITUITARISM
     Dosage: 0.8 MG, 1X/DAY
     Dates: start: 2007, end: 20131113
  2. HYDROCORTISONE [Concomitant]
     Indication: SECONDARY ADRENOCORTICAL INSUFFICIENCY
     Dosage: 2.5 MG, 3X/DAY; 8.1 MG/ M2 PER DAY
     Dates: start: 20080714
  3. SYNTHROID [Concomitant]
     Indication: HYPOPITUITARISM
     Dosage: 0.50 MG, 1X/DAY
  4. CLARITIN [Concomitant]
  5. LEVOTHYROXINE [Concomitant]
     Dosage: 50 MG, DAILY
     Dates: start: 20121002

REACTIONS (5)
  - Intervertebral disc protrusion [Unknown]
  - Optic disc disorder [Unknown]
  - Headache [Recovered/Resolved]
  - Incorrect dose administered [Unknown]
  - Insulin-like growth factor increased [Unknown]
